FAERS Safety Report 10404279 (Version 1)
Quarter: 2014Q1

REPORT INFORMATION
  Report Type: Spontaneous
  Country: US (occurrence: None)
  Receive Date: 20140214
  Receipt Date: 20140214
  Transmission Date: 20141002
  Serious: No
  Sender: FDA-Public Use
  Company Number: A-US2013-92929

PATIENT
  Age: 68 Year
  Sex: Male

DRUGS (4)
  1. OPSUMIT [Suspect]
     Indication: PRODUCT USED FOR UNKNOWN INDICATION
     Route: 048
  2. ADCIRCA (TADALAFIL) [Concomitant]
  3. REMODULIN (TREPROSTINIL) [Concomitant]
  4. COUMADIN (WARFARIN) [Concomitant]

REACTIONS (2)
  - Oxygen saturation decreased [None]
  - Malaise [None]
